FAERS Safety Report 7443889-4 (Version None)
Quarter: 2011Q2

REPORT INFORMATION
  Report Type: 
  Country: None (occurrence: None)
  Receive Date: 20110428
  Receipt Date: 20110210
  Transmission Date: 20111010
  Serious: Yes (Other)
  Sender: FDA-Public Use
  Company Number: US-BAYER-2011-016835

PATIENT
  Sex: Female
  Weight: 83 kg

DRUGS (36)
  1. VYTORIN [Concomitant]
  2. NEPHROVITE [VIT C,VIT H,B5,B12,B9,B3,B6,B2,B1 HCL] [Concomitant]
  3. RENAGEL [Concomitant]
  4. PLAVIX [Concomitant]
  5. PROPRANOLOL [Concomitant]
  6. NIFEDIPINE [Concomitant]
  7. VALCYTE [Concomitant]
  8. PROGRAF [Concomitant]
  9. CALCITRIOL [Concomitant]
  10. LYRICA [Concomitant]
  11. ACCUPRIL [Concomitant]
  12. TOPROL-XL [Concomitant]
  13. FERRLECIT [Concomitant]
  14. FUROSEMIDE [Concomitant]
  15. PROCRIT [Concomitant]
  16. CARTIA XT [Concomitant]
  17. NEURONTIN [Concomitant]
  18. PREDNISONE [Concomitant]
  19. OMNISCAN [Suspect]
     Dosage: 60 ML, ONCE
     Dates: start: 20060721, end: 20060721
  20. CELEXA [Concomitant]
  21. CLONIDINE [Concomitant]
  22. FERROUS SULFATE TAB [Concomitant]
  23. ZEMPLAR [Concomitant]
  24. ARANESP [Concomitant]
  25. HUMALOG [Concomitant]
  26. LANTUS [Concomitant]
  27. MYFORTIC [Concomitant]
  28. FOSRENOL [Concomitant]
  29. EPOGEN [Concomitant]
  30. ZESTRIL [Concomitant]
  31. MAGNEVIST [Suspect]
     Indication: ANGIOGRAM
     Dosage: UNK UNK, ONCE
     Dates: start: 20031020, end: 20031020
  32. OMNISCAN [Suspect]
     Indication: ANGIOGRAM
     Dosage: UNK, ONCE
     Dates: start: 20031020, end: 20031020
  33. DIGOXIN [Concomitant]
  34. DEPAKOTE [Concomitant]
  35. ZAROXOLYN [Concomitant]
  36. TERAZOSIN [Concomitant]

REACTIONS (14)
  - NEPHROGENIC SYSTEMIC FIBROSIS [None]
  - SKIN TIGHTNESS [None]
  - JOINT CONTRACTURE [None]
  - ARTERIOSCLEROSIS CORONARY ARTERY [None]
  - JOINT RANGE OF MOTION DECREASED [None]
  - SKIN INDURATION [None]
  - SKIN EXFOLIATION [None]
  - SKIN LESION [None]
  - PAIN [None]
  - AORTIC CALCIFICATION [None]
  - PRURITUS [None]
  - MUSCULOSKELETAL STIFFNESS [None]
  - SKIN FIBROSIS [None]
  - SKIN PLAQUE [None]
